FAERS Safety Report 25012877 (Version 2)
Quarter: 2025Q2

REPORT INFORMATION
  Report Type: Spontaneous
  Country: PL (occurrence: PL)
  Receive Date: 20250226
  Receipt Date: 20250428
  Transmission Date: 20250717
  Serious: Yes (Other)
  Sender: TERSERA THERAPEUTICS
  Company Number: PL-002147023-NVSC2025PL024659

PATIENT

DRUGS (7)
  1. GOSERELIN [Suspect]
     Active Substance: GOSERELIN
     Indication: Breast cancer
     Route: 058
     Dates: start: 20240123
  2. ZOLADEX [Suspect]
     Active Substance: GOSERELIN ACETATE
     Indication: Breast cancer
     Route: 065
  3. RIBOCICLIB [Suspect]
     Active Substance: RIBOCICLIB
     Indication: Breast cancer
     Route: 065
     Dates: start: 20240206
  4. RIBOCICLIB [Suspect]
     Active Substance: RIBOCICLIB
     Route: 065
  5. RIBOCICLIB [Suspect]
     Active Substance: RIBOCICLIB
     Route: 065
  6. LETROZOLE [Suspect]
     Active Substance: LETROZOLE
     Indication: Breast cancer
     Route: 065
     Dates: start: 20240206
  7. ZOLEDRONIC ACID [Suspect]
     Active Substance: ZOLEDRONIC ACID
     Indication: Breast cancer
     Dosage: 4 MG, Q4W
     Route: 042

REACTIONS (1)
  - Palmar-plantar erythrodysaesthesia syndrome [Recovered/Resolved]
